FAERS Safety Report 4347658-3 (Version None)
Quarter: 2004Q1

REPORT INFORMATION
  Report Type: 
  Country: None (occurrence: None)
  Receive Date: 20040325
  Receipt Date: 20031210
  Transmission Date: 20041129
  Serious: No
  Sender: FDA-Public Use
  Company Number: USA031254508

PATIENT
  Age: 32 Year
  Sex: Male
  Weight: 44 kg

DRUGS (4)
  1. FORTEO [Suspect]
     Indication: OSTEOPOROSIS
     Dates: start: 20031204
  2. FORTEO [Suspect]
     Indication: SPINAL DISORDER
     Dates: start: 20031204
  3. TRILEPTAL [Concomitant]
  4. NEXIUM [Concomitant]

REACTIONS (2)
  - ABDOMINAL PAIN UPPER [None]
  - DIARRHOEA [None]
